FAERS Safety Report 6993246-X (Version None)
Quarter: 2010Q3

REPORT INFORMATION
  Report Type: 
  Country: None (occurrence: None)
  Receive Date: 20100917
  Receipt Date: 20091201
  Transmission Date: 20110219
  Serious: No
  Sender: FDA-Public Use
  Company Number: US-ASTRAZENECA-2009SE19618

PATIENT
  Age: 622 Month
  Sex: Female
  Weight: 78 kg

DRUGS (13)
  1. SEROQUEL [Suspect]
     Indication: BIPOLAR DISORDER
     Dosage: VARIOUS DOSES
     Route: 048
     Dates: start: 20000101
  2. ABILIFY [Concomitant]
     Dates: start: 20060101
  3. CLOZARIL [Concomitant]
     Dates: start: 19990101
  4. GEODON [Concomitant]
     Dates: start: 19980101
  5. HALDOL [Concomitant]
     Dates: start: 19960101
  6. NAVANE [Concomitant]
     Dates: start: 19940101
  7. RISPERDAL [Concomitant]
     Dates: start: 19960101
  8. ZYPREXA [Concomitant]
     Dates: start: 19980101, end: 19990101
  9. CARBATROL [Concomitant]
  10. CYMBALTRA [Concomitant]
  11. CLONAZEPHAM [Concomitant]
  12. PRISTIQ [Concomitant]
  13. LAMOTRIGINE [Concomitant]

REACTIONS (2)
  - OBESITY [None]
  - TYPE 2 DIABETES MELLITUS [None]
